FAERS Safety Report 13529296 (Version 1)
Quarter: 2017Q2

REPORT INFORMATION
  Report Type: Spontaneous
  Country: US (occurrence: US)
  Receive Date: 20170509
  Receipt Date: 20170509
  Transmission Date: 20170830
  Serious: No
  Sender: FDA-Public Use
  Company Number: US-ROCHE-GNE287678

PATIENT
  Sex: Female
  Weight: 52.21 kg

DRUGS (1)
  1. XOLAIR [Suspect]
     Active Substance: OMALIZUMAB
     Indication: ASTHMA
     Dosage: 2 VIAL, Q4W, DOSE=2 VIAL, DAILY DOSE=.072 VIAL, TOTAL DOSE=2 VIAL
     Route: 042

REACTIONS (2)
  - Pain in extremity [Unknown]
  - Fall [None]
